FAERS Safety Report 23490665 (Version 1)
Quarter: 2024Q1

REPORT INFORMATION
  Report Type: Spontaneous
  Country: US (occurrence: None)
  Receive Date: 20240206
  Receipt Date: 20240206
  Transmission Date: 20240409
  Serious: No
  Sender: FDA-Public Use
  Company Number: US-ROCHE-3285297

PATIENT
  Sex: Male

DRUGS (3)
  1. NUTROPIN [Suspect]
     Active Substance: SOMATROPIN
     Indication: Short stature
     Dosage: FREQUENCY: DAILY, ONGOING: YES, NUSPIN 5MG/2ML
     Route: 058
     Dates: start: 20230207
  2. NUTROPIN [Suspect]
     Active Substance: SOMATROPIN
  3. CEPHALEXIN [Concomitant]
     Active Substance: CEPHALEXIN
     Indication: Pharyngitis streptococcal
     Route: 048
     Dates: start: 20230203

REACTIONS (3)
  - Product quality issue [Unknown]
  - Wrong technique in product usage process [Unknown]
  - No adverse event [Unknown]

NARRATIVE: CASE EVENT DATE: 20230207
